FAERS Safety Report 4656594-4 (Version None)
Quarter: 2005Q2

REPORT INFORMATION
  Report Type: 
  Country: None (occurrence: None)
  Receive Date: 20050506
  Receipt Date: 20050428
  Transmission Date: 20051028
  Serious: No
  Sender: FDA-Public Use
  Company Number: 05H-144-0298796-00

PATIENT
  Age: 77 Year
  Sex: Female

DRUGS (2)
  1. HEPARIN SODIUM [Suspect]
     Indication: ANTICOAGULANT THERAPY
     Dosage: 1000 UNIT
  2. COLLOID [Concomitant]

REACTIONS (8)
  - ANAPHYLACTIC REACTION [None]
  - DRUG SPECIFIC ANTIBODY PRESENT [None]
  - HYPERHIDROSIS [None]
  - HYPOTENSION [None]
  - HYPOTONIA [None]
  - LOSS OF CONSCIOUSNESS [None]
  - RALES [None]
  - THROMBOCYTOPENIA [None]
